FAERS Safety Report 8210977-4 (Version None)
Quarter: 2012Q1

REPORT INFORMATION
  Report Type: 
  Country: None (occurrence: None)
  Receive Date: 20120229
  Receipt Date: 20110630
  Transmission Date: 20120608
  Serious: Yes (Other)
  Sender: FDA-Public Use
  Company Number: PHHY2011US58350

PATIENT
  Age: 65 Year
  Sex: Female

DRUGS (14)
  1. TEGRETOL [Suspect]
     Indication: CONVULSION
  2. POTASSIUM CHLORIDE [Concomitant]
  3. LASIX [Concomitant]
  4. ONDANSETRON [Concomitant]
  5. SPIRONOLACTONE [Concomitant]
  6. CHANTIX [Suspect]
     Indication: SMOKING CESSATION THERAPY
     Dosage: ORAL
     Dates: start: 20090101
  7. RELPAX [Suspect]
     Indication: MIGRAINE
     Dosage: ORAL
     Route: 048
  8. PILOCARPINE HYDROCHLORIDE [Concomitant]
  9. EFEXOR XR (VENLAFAXINE) [Concomitant]
  10. FLUTICASONE PROPIONATE [Concomitant]
  11. SPIRIVA [Concomitant]
  12. XYREM [Concomitant]
  13. ADVAIR HFA [Concomitant]
  14. PROVENTIL [Concomitant]

REACTIONS (4)
  - CONVULSION [None]
  - ANAEMIA [None]
  - ABNORMAL DREAMS [None]
  - WEIGHT INCREASED [None]
